FAERS Safety Report 20635761 (Version 1)
Quarter: 2022Q1

REPORT INFORMATION
  Report Type: Report from Study
  Country: US (occurrence: US)
  Receive Date: 20220325
  Receipt Date: 20220325
  Transmission Date: 20220424
  Serious: Yes (Other)
  Sender: FDA-Public Use
  Company Number: US-JNJFOC-20220344777

PATIENT
  Age: 33 Year
  Sex: Male

DRUGS (2)
  1. SIMPONI [Suspect]
     Active Substance: GOLIMUMAB
     Indication: Ankylosing spondylitis
     Route: 058
     Dates: start: 2019, end: 20220101
  2. SIMPONI [Suspect]
     Active Substance: GOLIMUMAB
     Route: 058
     Dates: start: 20220308

REACTIONS (3)
  - Urethral stenosis [Recovering/Resolving]
  - Ankylosing spondylitis [Recovering/Resolving]
  - Urethritis [Recovering/Resolving]

NARRATIVE: CASE EVENT DATE: 20220101
